FAERS Safety Report 11500145 (Version 1)
Quarter: 2015Q3

REPORT INFORMATION
  Report Type: Spontaneous
  Country: US (occurrence: None)
  Receive Date: 20150910
  Receipt Date: 20150910
  Transmission Date: 20151125
  Serious: Yes (Other)
  Sender: FDA-Public Use
  Company Number: 001972541A

PATIENT
  Age: 17 Year
  Sex: Male

DRUGS (3)
  1. PROACTIV REPAIRING TREATMENT [Suspect]
     Active Substance: BENZOYL PEROXIDE
     Indication: ACNE
     Dosage: ONCE DERMAL
     Route: 062
     Dates: start: 20150805
  2. PROACTIV SOLUTION RENEWING CLEANSER [Suspect]
     Active Substance: BENZOYL PEROXIDE
     Indication: ACNE
     Dosage: ONCE DERMAL
     Route: 062
     Dates: start: 20150805
  3. PROACTIV SKIN LIGHTENING [Suspect]
     Active Substance: HYDROQUINONE
     Dosage: ONCE DERMAL
     Route: 062
     Dates: start: 20150805

REACTIONS (5)
  - Mouth swelling [None]
  - Lip swelling [None]
  - Pruritus [None]
  - Erythema [None]
  - Skin disorder [None]

NARRATIVE: CASE EVENT DATE: 20150805
